FAERS Safety Report 5207997-0 (Version None)
Quarter: 2007Q1

REPORT INFORMATION
  Report Type: 
  Country: None (occurrence: None)
  Receive Date: 20070110
  Receipt Date: 20061229
  Transmission Date: 20070707
  Serious: Yes (Hospitalization)
  Sender: FDA-Public Use
  Company Number: GXKR2006IT08557

PATIENT
  Age: 76 Year
  Sex: Female

DRUGS (1)
  1. DICLOFENAC (NGX)(DICLOFENAC) SOLUTION FOR INJECTION, 75/3MG/ML [Suspect]
     Indication: ARTHRALGIA
     Dosage: INTRAMUSCULAR
     Route: 030
     Dates: start: 20061026, end: 20061027

REACTIONS (3)
  - BRONCHOSTENOSIS [None]
  - DYSPNOEA [None]
  - FACE OEDEMA [None]
